FAERS Safety Report 23091220 (Version 5)
Quarter: 2024Q1

REPORT INFORMATION
  Report Type: Spontaneous
  Country: AT (occurrence: AT)
  Receive Date: 20231020
  Receipt Date: 20240228
  Transmission Date: 20240410
  Serious: Yes (Hospitalization)
  Sender: FDA-Public Use
  Company Number: AT-BRISTOL-MYERS SQUIBB COMPANY-2023-149791

PATIENT
  Age: 69 Year
  Sex: Female
  Weight: 112 kg

DRUGS (4)
  1. OPDIVO [Suspect]
     Active Substance: NIVOLUMAB
     Indication: Pleural mesothelioma
     Route: 042
     Dates: start: 20221123
  2. OPDIVO [Suspect]
     Active Substance: NIVOLUMAB
     Dosage: DOSE : 360 MG;     FREQ : EVERY 21 DAYS
     Route: 042
     Dates: start: 202308, end: 202310
  3. OPDIVO [Suspect]
     Active Substance: NIVOLUMAB
     Dates: start: 202311
  4. IPILIMUMAB [Suspect]
     Active Substance: IPILIMUMAB
     Indication: Mesothelioma
     Dosage: THERAPY START DATE: AUG-2023
     Dates: end: 202302

REACTIONS (2)
  - Secondary adrenocortical insufficiency [Not Recovered/Not Resolved]
  - Off label use [Unknown]

NARRATIVE: CASE EVENT DATE: 20230901
